FAERS Safety Report 6145815-7 (Version None)
Quarter: 2009Q2

REPORT INFORMATION
  Report Type: 
  Country: None (occurrence: None)
  Receive Date: 20090407
  Receipt Date: 20090313
  Transmission Date: 20091009
  Serious: No
  Sender: FDA-Public Use
  Company Number: US-B.I. PHARMACEUTICALS,INC./RIDGEFIELD-2009-BP-04224BP

PATIENT
  Sex: Male
  Weight: 83 kg

DRUGS (2)
  1. MIRAPEX [Suspect]
     Indication: PARKINSON'S DISEASE
     Dates: start: 20030425
  2. MIRAPEX [Suspect]
     Indication: RESTLESS LEGS SYNDROME

REACTIONS (6)
  - DEPRESSION [None]
  - DRUG DEPENDENCE [None]
  - NAUSEA [None]
  - PAIN [None]
  - PATHOLOGICAL GAMBLING [None]
  - SUICIDAL IDEATION [None]
